FAERS Safety Report 6257853-4 (Version None)
Quarter: 2009Q3

REPORT INFORMATION
  Report Type: 
  Country: None (occurrence: None)
  Receive Date: 20090707
  Receipt Date: 20090702
  Transmission Date: 20100115
  Serious: Yes (Other)
  Sender: FDA-Public Use
  Company Number: US-RB-017639-09

PATIENT
  Age: 37 Year
  Sex: Female

DRUGS (3)
  1. SUBUTEX [Suspect]
     Route: 060
     Dates: start: 20090101
  2. SUBOXONE [Suspect]
     Route: 060
     Dates: start: 20080101, end: 20090101
  3. SUBOXONE [Suspect]
     Route: 060
     Dates: start: 20090201

REACTIONS (2)
  - ABORTION SPONTANEOUS [None]
  - DRUG EXPOSURE DURING PREGNANCY [None]
